FAERS Safety Report 6973092-3 (Version None)
Quarter: 2010Q3

REPORT INFORMATION
  Report Type: 
  Country: None (occurrence: None)
  Receive Date: 20100909
  Receipt Date: 20100903
  Transmission Date: 20110219
  Serious: Yes (Other)
  Sender: FDA-Public Use
  Company Number: CA-BRISTOL-MYERS SQUIBB COMPANY-15273766

PATIENT
  Sex: Female

DRUGS (2)
  1. ABILIFY [Suspect]
     Dosage: STARTED WITH 15MG/DAY
  2. HALOPERIDOL [Concomitant]

REACTIONS (4)
  - AGITATION [None]
  - AKATHISIA [None]
  - ANXIETY [None]
  - LOSS OF CONSCIOUSNESS [None]
